FAERS Safety Report 5595793-4 (Version None)
Quarter: 2008Q1

REPORT INFORMATION
  Report Type: 
  Country: None (occurrence: None)
  Receive Date: 20080118
  Receipt Date: 20080115
  Transmission Date: 20080703
  Serious: Yes (Hospitalization)
  Sender: FDA-Public Use
  Company Number: B0503914A

PATIENT
  Age: 74 Year
  Sex: Female

DRUGS (10)
  1. AVANDIA [Suspect]
     Indication: DRUG USE FOR UNKNOWN INDICATION
     Dosage: 4MG PER DAY
     Route: 048
     Dates: start: 20061201, end: 20070718
  2. KALCIPOS [Concomitant]
  3. OMEPRAZOLE [Concomitant]
  4. INOLAXOL [Concomitant]
  5. FOLACIN [Concomitant]
  6. DIMETIKON [Concomitant]
  7. DUROFERON [Concomitant]
  8. LASIX [Concomitant]
  9. TROMBYL [Concomitant]
  10. IMDUR [Concomitant]

REACTIONS (3)
  - CARDIAC FAILURE [None]
  - CHEST PAIN [None]
  - PLEURAL EFFUSION [None]
